FAERS Safety Report 11025198 (Version 1)
Quarter: 2015Q2

REPORT INFORMATION
  Report Type: Spontaneous
  Country: US (occurrence: None)
  Receive Date: 20150413
  Receipt Date: 20150413
  Transmission Date: 20150821
  Serious: No
  Sender: FDA-Public Use
  Company Number: None

PATIENT
  Age: 59 Year
  Sex: Female

DRUGS (1)
  1. HUMIRA [Suspect]
     Active Substance: ADALIMUMAB
     Indication: ARTHROPATHY
     Dosage: EVERY 14 DAYS
     Route: 058
     Dates: start: 20150115

REACTIONS (3)
  - Pain [None]
  - Lower extremity mass [None]
  - Upper extremity mass [None]

NARRATIVE: CASE EVENT DATE: 20150401
